FAERS Safety Report 14323470 (Version 1)
Quarter: 2017Q4

REPORT INFORMATION
  Report Type: Spontaneous
  Country: US (occurrence: US)
  Receive Date: 20171226
  Receipt Date: 20171226
  Transmission Date: 20180321
  Serious: No
  Sender: FDA-Public Use
  Company Number: US-TEVA-2017-US-839632

PATIENT
  Sex: Female

DRUGS (1)
  1. PROTRIPTYLINE [Suspect]
     Active Substance: PROTRIPTYLINE

REACTIONS (1)
  - Drug hypersensitivity [Unknown]
